FAERS Safety Report 22093562 (Version 1)
Quarter: 2023Q1

REPORT INFORMATION
  Report Type: Spontaneous
  Country: US (occurrence: US)
  Receive Date: 20230314
  Receipt Date: 20230314
  Transmission Date: 20230418
  Serious: Yes (Other)
  Sender: FDA-Public Use
  Company Number: US-BAXTER-2023BAX015084

PATIENT
  Age: 59 Year
  Sex: Male

DRUGS (3)
  1. NEXTERONE [Suspect]
     Active Substance: AMIODARONE HYDROCHLORIDE
     Indication: Atrial fibrillation
     Route: 065
  2. NEXTERONE [Suspect]
     Active Substance: AMIODARONE HYDROCHLORIDE
     Dosage: TWO CARDIOVERSIONS WITH RE-ATTEMPT AT AMIODARONE LOADING DID NOT CONVERT TO SINUS RHYTHM
     Route: 065
  3. DOBUTAMINE [Concomitant]
     Active Substance: DOBUTAMINE HYDROCHLORIDE
     Indication: Cardiogenic shock
     Route: 065

REACTIONS (5)
  - Toxicity to various agents [Unknown]
  - Acute hepatic failure [Unknown]
  - Alanine aminotransferase increased [Unknown]
  - Aspartate aminotransferase increased [Unknown]
  - International normalised ratio increased [Unknown]
